FAERS Safety Report 9522153 (Version 1)
Quarter: 2013Q1

REPORT INFORMATION
  Report Type: Spontaneous
  Country: US (occurrence: None)
  Receive Date: 20130305
  Receipt Date: 20130305
  Transmission Date: 20140127
  Serious: Yes (Other)
  Sender: FDA-Public Use
  Company Number: 163-21880-12032185

PATIENT
  Age: 58 Year
  Sex: Female

DRUGS (1)
  1. REVLIMID (LENALIDOMIDE) (15 MILLIGRAM, CAPSULES) [Suspect]
     Indication: NEOPLASM
     Dosage: 1 IN 1 D
     Route: 048
     Dates: start: 201109

REACTIONS (5)
  - Pelvic fracture [None]
  - Rib fracture [None]
  - Fall [None]
  - Skin infection [None]
  - Upper respiratory tract infection [None]
